FAERS Safety Report 15052944 (Version 1)
Quarter: 2018Q2

REPORT INFORMATION
  Report Type: Spontaneous
  Country: FR (occurrence: FR)
  Receive Date: 20180622
  Receipt Date: 20180622
  Transmission Date: 20180711
  Serious: Yes (Other)
  Sender: FDA-Public Use
  Company Number: FR-SA-2018SA153963

PATIENT
  Age: 45 Year
  Sex: Female
  Weight: 85 kg

DRUGS (3)
  1. THYMOGLOBULINE [Suspect]
     Active Substance: LAPINE T-LYMPHOCYTE IMMUNE GLOBULIN
     Route: 041
     Dates: start: 20180520, end: 20180521
  2. BUSILVEX [Suspect]
     Active Substance: BUSULFAN
     Route: 041
     Dates: start: 20180517, end: 20180519
  3. FLUDARABINE TEVA [Suspect]
     Active Substance: FLUDARABINE PHOSPHATE
     Route: 041
     Dates: start: 20180517, end: 20180521

REACTIONS (1)
  - Hepatocellular injury [Recovering/Resolving]

NARRATIVE: CASE EVENT DATE: 20180521
